FAERS Safety Report 4360258-4 (Version None)
Quarter: 2004Q2

REPORT INFORMATION
  Report Type: 
  Country: None (occurrence: None)
  Receive Date: 20040518
  Receipt Date: 20040518
  Transmission Date: 20050107
  Serious: Yes (Life-Threatening, Hospitalization)
  Sender: FDA-Public Use
  Company Number: None

PATIENT
  Age: 44 Year
  Sex: Female
  Weight: 72.6 kg

DRUGS (10)
  1. KETOROLAC INJ-30 MG IV Q 6 H MKG ABBOTT [Suspect]
     Indication: PAIN
     Dosage: 30 MG IVP Q 6 H
     Route: 042
     Dates: start: 20040130
  2. WELLBUTRIN [Concomitant]
  3. BUSPAR [Concomitant]
  4. ALLEGRA [Concomitant]
  5. PEPCID [Concomitant]
  6. PREVACID [Concomitant]
  7. HRT [Concomitant]
  8. CEFAZOLIN [Concomitant]
  9. HYDROMORPHONE [Concomitant]
  10. ZOFRAN [Concomitant]

REACTIONS (5)
  - ASPIRATION [None]
  - BLOOD PRESSURE DECREASED [None]
  - COMA [None]
  - OXYGEN SATURATION DECREASED [None]
  - WHEEZING [None]
